FAERS Safety Report 23062693 (Version 1)
Quarter: 2023Q4

REPORT INFORMATION
  Report Type: Report from Study
  Country: US (occurrence: None)
  Receive Date: 20231013
  Receipt Date: 20231013
  Transmission Date: 20240110
  Serious: Yes (Hospitalization)
  Sender: FDA-Public Use
  Company Number: US-ROCHE-3343911

PATIENT
  Age: 48 Year
  Sex: Female

DRUGS (2)
  1. PERTUZUMAB [Suspect]
     Active Substance: PERTUZUMAB
     Indication: Metastases to meninges
     Dosage: MOST RECENT DOSE : 02/JUN/2023, BEGINNING AT 10 MG AND INCREASING UP TO 80 MG
     Route: 037
     Dates: start: 20230124
  2. TRASTUZUMAB [Suspect]
     Active Substance: TRASTUZUMAB
     Indication: Metastases to meninges
     Dosage: MOST RECENT DOSE : 02/JUN/2023
     Route: 037
     Dates: start: 20230124

REACTIONS (1)
  - Muscular weakness [Recovered/Resolved with Sequelae]

NARRATIVE: CASE EVENT DATE: 20230615
